FAERS Safety Report 5373503-3 (Version None)
Quarter: 2007Q2

REPORT INFORMATION
  Report Type: 
  Country: None (occurrence: None)
  Receive Date: 20070628
  Receipt Date: 20070626
  Transmission Date: 20071010
  Serious: Yes (Disabling)
  Sender: FDA-Public Use
  Company Number: A0651580A

PATIENT
  Age: 61 Year
  Sex: Female

DRUGS (6)
  1. TYKERB [Suspect]
     Indication: BREAST CANCER
     Dosage: 5TAB PER DAY
     Route: 048
     Dates: start: 20070511, end: 20070512
  2. SYNTHROID [Concomitant]
  3. LASIX [Concomitant]
  4. POTASSIUM ACETATE [Concomitant]
  5. PREVACID [Concomitant]
  6. PROZAC [Concomitant]

REACTIONS (3)
  - DIARRHOEA [None]
  - PYREXIA [None]
  - VOMITING [None]
